FAERS Safety Report 12228490 (Version 1)
Quarter: 2016Q2

REPORT INFORMATION
  Report Type: Spontaneous
  Country: US (occurrence: US)
  Receive Date: 20160401
  Receipt Date: 20160401
  Transmission Date: 20160815
  Serious: No
  Sender: FDA-Public Use
  Company Number: US-PFIZER INC-2016144515

PATIENT
  Sex: Female

DRUGS (1)
  1. LIPITOR [Suspect]
     Active Substance: ATORVASTATIN CALCIUM
     Dosage: 10 MG, UNK

REACTIONS (5)
  - Neck pain [Unknown]
  - Spinal pain [Unknown]
  - Pain in extremity [Unknown]
  - Hypersomnia [Unknown]
  - Gastrointestinal disorder [Unknown]
